FAERS Safety Report 5708214-5 (Version None)
Quarter: 2008Q2

REPORT INFORMATION
  Report Type: 
  Country: None (occurrence: None)
  Receive Date: 20080417
  Receipt Date: 20080407
  Transmission Date: 20081010
  Serious: Yes (Hospitalization)
  Sender: FDA-Public Use
  Company Number: US-JNJFOC-20080302397

PATIENT
  Sex: Male
  Weight: 95.12 kg

DRUGS (4)
  1. TRAMADOL HCL [Suspect]
     Indication: ARTHRITIS
     Route: 048
  2. NAPROXEN [Suspect]
     Indication: ARTHRITIS
     Route: 048
  3. PRAVASTATIN SODIUM [Suspect]
     Indication: HYPERCHOLESTEROLAEMIA
     Route: 048
  4. TEMAZEPAM [Concomitant]
     Indication: DRUG USE FOR UNKNOWN INDICATION
     Route: 065

REACTIONS (3)
  - LIVER FUNCTION TEST ABNORMAL [None]
  - PNEUMONIA [None]
  - RENAL FAILURE ACUTE [None]
